FAERS Safety Report 11895141 (Version 1)
Quarter: 2016Q1

REPORT INFORMATION
  Report Type: Spontaneous
  Country: US (occurrence: None)
  Receive Date: 20160106
  Receipt Date: 20160106
  Transmission Date: 20160526
  Serious: Yes (Disabling)
  Sender: FDA-Public Use
  Company Number: None

PATIENT
  Age: 26 Year
  Sex: Female
  Weight: 71.67 kg

DRUGS (1)
  1. NEXPLANON [Suspect]
     Active Substance: ETONOGESTREL
     Dates: start: 20150510

REACTIONS (4)
  - Asthenia [None]
  - Libido disorder [None]
  - Menorrhagia [None]
  - Anaemia [None]

NARRATIVE: CASE EVENT DATE: 20150510
